FAERS Safety Report 16393263 (Version 1)
Quarter: 2019Q2

REPORT INFORMATION
  Report Type: Report from Study
  Country: JP (occurrence: JP)
  Receive Date: 20190605
  Receipt Date: 20190605
  Transmission Date: 20190711
  Serious: Yes (Hospitalization)
  Sender: FDA-Public Use
  Company Number: JP-SA-2019SA150233

PATIENT
  Age: 51 Year
  Sex: Female
  Weight: 39.4 kg

DRUGS (55)
  1. AFLIBERCEPT [Suspect]
     Active Substance: AFLIBERCEPT
     Indication: RECTAL CANCER
     Dosage: DAILY DOSAGE: 4 MG/KG
     Route: 041
     Dates: start: 20181019, end: 20181019
  2. AFLIBERCEPT [Suspect]
     Active Substance: AFLIBERCEPT
     Dosage: DAILY DOSAGE: 4 MG/KG
     Route: 041
     Dates: start: 20180622, end: 20180622
  3. CALCIUM LEVOFOLINATE [Suspect]
     Active Substance: LEVOLEUCOVORIN CALCIUM
     Dosage: DAILY DOSAGE: 180 MG/M2
     Route: 065
     Dates: start: 20180720, end: 20180720
  4. FLUOROURACIL. [Suspect]
     Active Substance: FLUOROURACIL
     Indication: RECTAL CANCER
     Dosage: DAILY DOSAGE: 1900 MG/M2
     Route: 041
     Dates: start: 20181019, end: 20181019
  5. FLUOROURACIL. [Suspect]
     Active Substance: FLUOROURACIL
     Dosage: DAILY DOSAGE: 2160 MG/M2
     Route: 041
     Dates: start: 20180622, end: 20180622
  6. FLUOROURACIL. [Suspect]
     Active Substance: FLUOROURACIL
     Dosage: DAILY DOSAGE: 2160 MG/M2
     Route: 041
     Dates: start: 20180706, end: 20180706
  7. AFLIBERCEPT [Suspect]
     Active Substance: AFLIBERCEPT
     Dosage: DAILY DOSAGE: 4 MG/KG
     Route: 041
     Dates: start: 20180608, end: 20180608
  8. AFLIBERCEPT [Suspect]
     Active Substance: AFLIBERCEPT
     Dosage: DAILY DOSAGE: 4 MG/KG
     Route: 041
     Dates: start: 20180803, end: 20180803
  9. AFLIBERCEPT [Suspect]
     Active Substance: AFLIBERCEPT
     Dosage: DAILY DOSAGE: 4 MG/KG
     Route: 041
     Dates: start: 20180904, end: 20180904
  10. AFLIBERCEPT [Suspect]
     Active Substance: AFLIBERCEPT
     Dosage: DAILY DOSAGE: 4 MG/KG
     Route: 041
     Dates: start: 20181005, end: 20181005
  11. CALCIUM LEVOFOLINATE [Suspect]
     Active Substance: LEVOLEUCOVORIN CALCIUM
     Dosage: DAILY DOSAGE: 180 MG/M2
     Route: 065
     Dates: start: 20180706, end: 20180706
  12. IRINOTECAN [Suspect]
     Active Substance: IRINOTECAN
     Indication: RECTAL CANCER
     Dosage: DAILY DOSAGE: 120 MG/M2
     Route: 065
     Dates: start: 20180817, end: 20180817
  13. FLUOROURACIL. [Suspect]
     Active Substance: FLUOROURACIL
     Dosage: DAILY DOSAGE: BOLUS, 360 MG/M2
     Route: 042
     Dates: start: 20180608, end: 20180608
  14. FLUOROURACIL. [Suspect]
     Active Substance: FLUOROURACIL
     Dosage: DAILY DOSAGE: BOLUS, 360 MG/M2
     Route: 042
     Dates: start: 20180706, end: 20180706
  15. FLUOROURACIL. [Suspect]
     Active Substance: FLUOROURACIL
     Dosage: DAILY DOSAGE: 2160 MG/M2
     Route: 041
     Dates: start: 20180817, end: 20180817
  16. PRIMPERAN [Concomitant]
     Active Substance: METOCLOPRAMIDE HYDROCHLORIDE
     Indication: NAUSEA
     Dosage: UNK
     Route: 065
     Dates: start: 20181008, end: 20181009
  17. AFLIBERCEPT [Suspect]
     Active Substance: AFLIBERCEPT
     Dosage: DAILY DOSAGE: 4 MG/KG
     Route: 041
     Dates: start: 20180522, end: 20180522
  18. AFLIBERCEPT [Suspect]
     Active Substance: AFLIBERCEPT
     Dosage: DAILY DOSAGE: 4 MG/KG
     Route: 041
     Dates: start: 20180706, end: 20180706
  19. CALCIUM LEVOFOLINATE [Suspect]
     Active Substance: LEVOLEUCOVORIN CALCIUM
     Dosage: DAILY DOSAGE: 180 MG/M2
     Route: 065
     Dates: start: 20180608, end: 20180608
  20. CALCIUM LEVOFOLINATE [Suspect]
     Active Substance: LEVOLEUCOVORIN CALCIUM
     Dosage: DAILY DOSAGE: 180 MG/M2
     Route: 065
     Dates: start: 20180817, end: 20180817
  21. IRINOTECAN [Suspect]
     Active Substance: IRINOTECAN
     Dosage: DAILY DOSAGE: 120 MG/M2
     Route: 065
     Dates: start: 20180608, end: 20180608
  22. IRINOTECAN [Suspect]
     Active Substance: IRINOTECAN
     Dosage: DAILY DOSAGE: 120 MG/M2
     Route: 065
     Dates: start: 20180622, end: 20180622
  23. FLUOROURACIL. [Suspect]
     Active Substance: FLUOROURACIL
     Dosage: DAILY DOSAGE: 2400 MG/M2
     Route: 041
     Dates: start: 20180522, end: 20180522
  24. FLUOROURACIL. [Suspect]
     Active Substance: FLUOROURACIL
     Dosage: DAILY DOSAGE: 2160 MG/M2
     Route: 041
     Dates: start: 20180803, end: 20180803
  25. AFLIBERCEPT [Suspect]
     Active Substance: AFLIBERCEPT
     Dosage: DAILY DOSAGE: 4 MG/KG
     Route: 041
     Dates: start: 20180817, end: 20180817
  26. CALCIUM LEVOFOLINATE [Suspect]
     Active Substance: LEVOLEUCOVORIN CALCIUM
     Indication: RECTAL CANCER
     Dosage: DAILY DOSAGE: 180 MG/M2
     Route: 065
     Dates: start: 20181019, end: 20181019
  27. CALCIUM LEVOFOLINATE [Suspect]
     Active Substance: LEVOLEUCOVORIN CALCIUM
     Dosage: DAILY DOSAGE: 180 MG/M2
     Route: 065
     Dates: start: 20180803, end: 20180803
  28. IRINOTECAN [Suspect]
     Active Substance: IRINOTECAN
     Dosage: DAILY DOSAGE: 120 MG/M2
     Route: 065
     Dates: start: 20180706, end: 20180706
  29. IRINOTECAN [Suspect]
     Active Substance: IRINOTECAN
     Dosage: DAILY DOSAGE: 120 MG/M2
     Route: 065
     Dates: start: 20180803, end: 20180803
  30. FLUOROURACIL. [Suspect]
     Active Substance: FLUOROURACIL
     Dosage: DAILY DOSAGE: BOLUS, 320 MG/M2
     Route: 042
     Dates: start: 20180921, end: 20180921
  31. PRIMPERAN [Concomitant]
     Active Substance: METOCLOPRAMIDE HYDROCHLORIDE
     Indication: VOMITING
  32. BUSCOPAN [Concomitant]
     Active Substance: BUTYLSCOPOLAMINE BROMIDE
     Indication: ABDOMINAL PAIN
     Dosage: UNK
     Route: 048
     Dates: start: 20181009, end: 20181010
  33. IRINOTECAN [Suspect]
     Active Substance: IRINOTECAN
     Dosage: DAILY DOSAGE: 120 MG/M2
     Route: 065
     Dates: start: 20180522, end: 20180522
  34. FLUOROURACIL. [Suspect]
     Active Substance: FLUOROURACIL
     Dosage: DAILY DOSAGE: 2160 MG/M2
     Route: 041
     Dates: start: 20180720, end: 20180720
  35. FLUOROURACIL. [Suspect]
     Active Substance: FLUOROURACIL
     Dosage: DAILY DOSAGE: 1920 MG/M2
     Route: 041
     Dates: start: 20180904, end: 20180904
  36. FLUOROURACIL. [Suspect]
     Active Substance: FLUOROURACIL
     Dosage: DAILY DOSAGE: 1920 MG/M2
     Route: 041
     Dates: start: 20180921, end: 20180921
  37. FLUOROURACIL. [Suspect]
     Active Substance: FLUOROURACIL
     Dosage: DAILY DOSAGE: BOLUS, 320 MG/M2
     Route: 042
     Dates: start: 20181005, end: 20181005
  38. AFLIBERCEPT [Suspect]
     Active Substance: AFLIBERCEPT
     Dosage: DAILY DOSAGE: 4 MG/KG
     Route: 041
     Dates: start: 20180720, end: 20180720
  39. AFLIBERCEPT [Suspect]
     Active Substance: AFLIBERCEPT
     Dosage: DAILY DOSAGE: 4 MG/KG
     Route: 041
     Dates: start: 20180921, end: 20180921
  40. AFLIBERCEPT [Suspect]
     Active Substance: AFLIBERCEPT
     Dosage: DAILY DOSAGE: 4 MG/KG
     Route: 041
     Dates: start: 20181114, end: 20181114
  41. FLUOROURACIL. [Suspect]
     Active Substance: FLUOROURACIL
     Dosage: DAILY DOSAGE: 2160 MG/M2
     Route: 041
     Dates: start: 20180608, end: 20180608
  42. FLUOROURACIL. [Suspect]
     Active Substance: FLUOROURACIL
     Dosage: DAILY DOSAGE: BOLUS, 360 MG/M2
     Route: 042
     Dates: start: 20180622, end: 20180622
  43. FLUOROURACIL. [Suspect]
     Active Substance: FLUOROURACIL
     Dosage: DAILY DOSAGE: BOLUS, 360 MG/M2
     Route: 042
     Dates: start: 20180720, end: 20180720
  44. FLUOROURACIL. [Suspect]
     Active Substance: FLUOROURACIL
     Dosage: DAILY DOSAGE: BOLUS, 360 MG/M2
     Route: 042
     Dates: start: 20180803, end: 20180803
  45. CALCIUM LEVOFOLINATE [Suspect]
     Active Substance: LEVOLEUCOVORIN CALCIUM
     Dosage: DAILY DOSAGE: 180 MG/M2
     Route: 065
     Dates: start: 20180921, end: 20180921
  46. CALCIUM LEVOFOLINATE [Suspect]
     Active Substance: LEVOLEUCOVORIN CALCIUM
     Dosage: DAILY DOSAGE: 180 MG/M2
     Route: 065
     Dates: start: 20181005, end: 20181005
  47. IRINOTECAN [Suspect]
     Active Substance: IRINOTECAN
     Dosage: DAILY DOSAGE: 120 MG/M2
     Route: 065
     Dates: start: 20180720, end: 20180720
  48. FLUOROURACIL. [Suspect]
     Active Substance: FLUOROURACIL
     Dosage: DAILY DOSAGE: BOLUS, 360 MG/M2
     Route: 042
     Dates: start: 20180817, end: 20180817
  49. FLUOROURACIL. [Suspect]
     Active Substance: FLUOROURACIL
     Dosage: DAILY DOSAGE: BOLUS, 320 MG/M2
     Route: 042
     Dates: start: 20180904, end: 20180904
  50. FLUOROURACIL. [Suspect]
     Active Substance: FLUOROURACIL
     Dosage: DAILY DOSAGE: 1920 MG/M2
     Route: 041
     Dates: start: 20181005, end: 20181005
  51. CALCIUM LEVOFOLINATE [Suspect]
     Active Substance: LEVOLEUCOVORIN CALCIUM
     Dosage: DAILY DOSAGE: 200 MG/M2
     Route: 065
     Dates: start: 20180522, end: 20180522
  52. CALCIUM LEVOFOLINATE [Suspect]
     Active Substance: LEVOLEUCOVORIN CALCIUM
     Dosage: DAILY DOSAGE: 180 MG/M2
     Route: 065
     Dates: start: 20180622, end: 20180622
  53. CALCIUM LEVOFOLINATE [Suspect]
     Active Substance: LEVOLEUCOVORIN CALCIUM
     Dosage: DAILY DOSAGE: 180 MG/M2
     Route: 065
     Dates: start: 20180904, end: 20180904
  54. FLUOROURACIL. [Suspect]
     Active Substance: FLUOROURACIL
     Dosage: DAILY DOSAGE: BOLUS, 320 MG/M2
     Route: 042
     Dates: start: 20181019, end: 20181019
  55. FLUOROURACIL. [Suspect]
     Active Substance: FLUOROURACIL
     Dosage: DAILY DOSAGE: BOLUS, 400 MG/M2
     Route: 042
     Dates: start: 20180522, end: 20180522

REACTIONS (2)
  - Proteinuria [Unknown]
  - Malaise [Recovering/Resolving]

NARRATIVE: CASE EVENT DATE: 20181019
